FAERS Safety Report 4331345-1 (Version None)
Quarter: 2004Q1

REPORT INFORMATION
  Report Type: 
  Country: None (occurrence: None)
  Receive Date: 20040331
  Receipt Date: 20030421
  Transmission Date: 20041129
  Serious: Yes (Death)
  Sender: FDA-Public Use
  Company Number: 02100-USA-03-0240

PATIENT
  Sex: 0

DRUGS (1)
  1. PLETAL [Suspect]

REACTIONS (2)
  - POST PROCEDURAL COMPLICATION [None]
  - SUDDEN CARDIAC DEATH [None]
